FAERS Safety Report 4713100-3 (Version None)
Quarter: 2005Q3

REPORT INFORMATION
  Report Type: 
  Country: None (occurrence: None)
  Receive Date: 20050711
  Receipt Date: 20050705
  Transmission Date: 20060218
  Serious: Yes (Hospitalization, Other)
  Sender: FDA-Public Use
  Company Number: ESWYE800305JUL05

PATIENT
  Age: 75 Year
  Sex: Female

DRUGS (7)
  1. TAZOCEL (PIPERACILLIN/ TAZOBACTAM, INJECTION) [Suspect]
     Indication: BILIARY FISTULA
     Dosage: INTRAVENOUS
     Route: 042
     Dates: start: 20010318, end: 20010320
  2. TAZOCEL (PIPERACILLIN/ TAZOBACTAM, INJECTION) [Suspect]
     Indication: STREPTOCOCCAL INFECTION
     Dosage: INTRAVENOUS
     Route: 042
     Dates: start: 20010318, end: 20010320
  3. AUGMENTIN (AMOXICILLIN SODIUM/CLAVULANTE POTASSIUM) [Concomitant]
  4. NOLOTIL /SPA/ (METAMIZOLE MAGNESIUM) [Concomitant]
  5. HIBOR (BEMIPARIN SODIUM) [Concomitant]
  6. VANCOMYCIN [Concomitant]
  7. IMIPENEM (IMIPENEM) [Concomitant]

REACTIONS (3)
  - DERMATITIS EXFOLIATIVE [None]
  - RENAL FAILURE [None]
  - THROMBOCYTOPENIA [None]
